FAERS Safety Report 4289706-5 (Version None)
Quarter: 2004Q1

REPORT INFORMATION
  Report Type: 
  Country: None (occurrence: None)
  Receive Date: 20040126
  Receipt Date: 20031111
  Transmission Date: 20041129
  Serious: No
  Sender: FDA-Public Use
  Company Number: 03P-163-0241181-00

PATIENT
  Age: 48 Year
  Sex: Female
  Weight: 49.8957 kg

DRUGS (12)
  1. SYNTHROID [Suspect]
     Indication: HYPOTHYROIDISM
     Dosage: 112 MCG, 1 IN 1 D
  2. ENTACAPONE [Suspect]
     Indication: PARKINSON'S DISEASE
     Dosage: 100 MG, 2 IN 1 D, PER ORAL
     Route: 048
  3. SINEMET [Suspect]
     Indication: PARKINSON'S DISEASE
     Dosage: 25 MG/100 MG, PER ORAL
     Route: 048
  4. PRAMIPEXOLE DIHYDROCHLORIDE [Suspect]
     Indication: PARKINSON'S DISEASE
     Dosage: 0.5 MG, 2 IN 1 D, PER ORAL
     Route: 048
  5. CALCIUM CITRATE [Concomitant]
  6. ERGOCALCIFEROL [Concomitant]
  7. TOCOPHEROL CONCENTRATE CAP [Concomitant]
  8. BIOTIN [Concomitant]
  9. ASCORBIC ACID [Concomitant]
  10. ESTROGENS CONJUGATED [Concomitant]
  11. MULTI-VITAMINS [Concomitant]
  12. GELATIN [Concomitant]

REACTIONS (4)
  - DRUG EFFECT DECREASED [None]
  - DRUG INTERACTION [None]
  - HYPOKINESIA [None]
  - SLUGGISHNESS [None]
